FAERS Safety Report 8588004-9 (Version None)
Quarter: 2012Q3

REPORT INFORMATION
  Report Type: 
  Country: None (occurrence: None)
  Receive Date: 20120813
  Receipt Date: 20120803
  Transmission Date: 20120928
  Serious: Yes (Hospitalization)
  Sender: FDA-Public Use
  Company Number: FR-SP-E2012-05180

PATIENT
  Age: 36 Year
  Sex: Female

DRUGS (1)
  1. TUBERTEST [Suspect]
     Indication: IMMUNISATION
     Route: 065
     Dates: start: 20120730, end: 20120730

REACTIONS (5)
  - HYPERSENSITIVITY [None]
  - PYREXIA [None]
  - LIP OEDEMA [None]
  - OEDEMA PERIPHERAL [None]
  - MALAISE [None]
